FAERS Safety Report 26196563 (Version 1)
Quarter: 2025Q4

REPORT INFORMATION
  Report Type: Other
  Country: US (occurrence: US)
  Receive Date: 20251224
  Receipt Date: 20251224
  Transmission Date: 20260117
  Serious: No
  Sender: AVA, INC.
  Company Number: US-AVA, Inc.-2190887

PATIENT
  Age: 72 Year
  Sex: Female
  Weight: 68.182 kg

DRUGS (1)
  1. CHLORHEXIDINE GLUCONATE [Suspect]
     Active Substance: CHLORHEXIDINE GLUCONATE
     Indication: Preoperative care
     Route: 048

REACTIONS (1)
  - Skin irritation [Unknown]
